FAERS Safety Report 17886140 (Version 3)
Quarter: 2022Q2

REPORT INFORMATION
  Report Type: Report from Study
  Country: US (occurrence: None)
  Receive Date: 20200611
  Receipt Date: 20220513
  Transmission Date: 20220720
  Serious: Yes (Life-Threatening, Hospitalization)
  Sender: FDA-Public Use
  Company Number: US-ROCHE-2612802

PATIENT
  Age: 52 Year
  Sex: Male
  Weight: 90.7 kg

DRUGS (21)
  1. PIRFENIDONE [Suspect]
     Active Substance: PIRFENIDONE
     Indication: Systemic sclerosis pulmonary
     Route: 048
  2. MYCOPHENOLATE MOFETIL [Suspect]
     Active Substance: MYCOPHENOLATE MOFETIL
     Indication: Systemic sclerosis pulmonary
     Dosage: 1500 MG (6 CAPSULES)
     Route: 048
     Dates: start: 20191028, end: 20200506
  3. MYCOPHENOLATE MOFETIL [Suspect]
     Active Substance: MYCOPHENOLATE MOFETIL
     Route: 048
     Dates: start: 20200604, end: 20200626
  4. ARMODAFINIL [Concomitant]
     Active Substance: ARMODAFINIL
     Route: 048
     Dates: start: 2014
  5. ARMODAFINIL [Concomitant]
     Active Substance: ARMODAFINIL
     Dosage: TAKE 1 TABLET BY MOUTH DAILY?TABLETS DISPENSED ARE 90 TABLETS.
     Route: 048
     Dates: start: 20200504, end: 20201031
  6. PRAVASTATIN [Concomitant]
     Active Substance: PRAVASTATIN
     Indication: Type V hyperlipidaemia
     Dates: start: 2009
  7. PRAVASTATIN [Concomitant]
     Active Substance: PRAVASTATIN
     Dosage: TAKE 1 TABLET(40 MG) BY MOUTH DAILY?TABLETS DISPENSED ARE 90.
     Route: 048
     Dates: start: 20200504, end: 20210504
  8. OMEPRAZOLE [Concomitant]
     Active Substance: OMEPRAZOLE
     Dosage: TAKE 20MG BY MOUTH DAILY.
     Route: 048
     Dates: start: 20190923
  9. AMLODIPINE [Concomitant]
     Active Substance: AMLODIPINE BESYLATE
     Route: 048
     Dates: start: 20191029
  10. AMLODIPINE [Concomitant]
     Active Substance: AMLODIPINE BESYLATE
     Dosage: TAKE 5 MG BY MOUTH DAILY.
     Route: 048
  11. ALBUTEROL [Concomitant]
     Active Substance: ALBUTEROL
     Dosage: 2 PUFFS
     Dates: start: 20200605
  12. PREDNISONE [Concomitant]
     Active Substance: PREDNISONE
     Dosage: TAKE 4 TABLETS DAILY INTO 3 DAYS, 3 TABLETS DAILY INTO 3 DAYS, 2 TABLETS DAILY INTO 3 DAYS THEN 1 TA
     Dates: start: 20200627, end: 20200713
  13. PREDNISONE [Concomitant]
     Active Substance: PREDNISONE
     Dosage: 2 TABLETS BY MOUTH AS 4 DOSES.
     Route: 048
  14. MUPIROCIN [Concomitant]
     Active Substance: MUPIROCIN
     Route: 045
     Dates: start: 20200621
  15. MUPIROCIN [Concomitant]
     Active Substance: MUPIROCIN
     Dosage: 2 TIMES DAILY, 1 TREATMENT NASAL
     Route: 045
     Dates: start: 20200512
  16. AMOXICILLIN\CLAVULANIC ACID [Concomitant]
     Active Substance: AMOXICILLIN\CLAVULANIC ACID
     Dosage: 87-125 MG
  17. ELIQUIS [Concomitant]
     Active Substance: APIXABAN
     Dosage: 1 TABLET BY MOUTH 2 TIMES DAILY
     Route: 048
  18. SOLU-MEDROL [Concomitant]
     Active Substance: METHYLPREDNISOLONE SODIUM SUCCINATE
  19. COMBIVENT [Concomitant]
     Active Substance: ALBUTEROL SULFATE\IPRATROPIUM BROMIDE
  20. LOVENOX [Concomitant]
     Active Substance: ENOXAPARIN SODIUM
  21. SODIUM CHLORIDE [Concomitant]
     Active Substance: SODIUM CHLORIDE
     Dosage: 500ML BOLUS

REACTIONS (2)
  - COVID-19 pneumonia [Recovered/Resolved]
  - Acute respiratory failure [Recovered/Resolved with Sequelae]

NARRATIVE: CASE EVENT DATE: 20200506
